FAERS Safety Report 15928060 (Version 1)
Quarter: 2019Q1

REPORT INFORMATION
  Report Type: Spontaneous
  Country: DK (occurrence: DK)
  Receive Date: 20190206
  Receipt Date: 20190206
  Transmission Date: 20190417
  Serious: Yes (Death, Hospitalization)
  Sender: FDA-Public Use
  Company Number: DK-TITAN PHARMACEUTICALS-2019TAN00004

PATIENT
  Sex: Male

DRUGS (1)
  1. BUPRENORPHINE. [Suspect]
     Active Substance: BUPRENORPHINE
     Dosage: 5 ?G, CONTINUOUS/HR
     Route: 062

REACTIONS (2)
  - Haematemesis [None]
  - Faecaloma [Fatal]
